FAERS Safety Report 24657471 (Version 4)
Quarter: 2025Q1

REPORT INFORMATION
  Report Type: Report from Study
  Country: US (occurrence: US)
  Receive Date: 20241125
  Receipt Date: 20250311
  Transmission Date: 20250409
  Serious: Yes (Death, Hospitalization, Other)
  Sender: TAKEDA
  Company Number: US-TAKEDA-2024TUS116205

PATIENT
  Age: 66 Year
  Sex: Male
  Weight: 77.098 kg

DRUGS (2)
  1. GLASSIA [Suspect]
     Active Substance: .ALPHA.1-PROTEINASE INHIBITOR HUMAN
     Indication: Alpha-1 antitrypsin deficiency
     Dosage: 60 MILLIGRAM/KILOGRAM, 1/WEEK
  2. GLASSIA [Suspect]
     Active Substance: .ALPHA.1-PROTEINASE INHIBITOR HUMAN

REACTIONS (7)
  - Pancreatic carcinoma [Fatal]
  - Cholangitis [Recovering/Resolving]
  - Cholelithiasis [Recovering/Resolving]
  - Hepatic infection [Recovering/Resolving]
  - Pancreas infection [Recovering/Resolving]
  - Complication associated with device [Recovering/Resolving]
  - Illness [Recovering/Resolving]
